FAERS Safety Report 10655026 (Version 1)
Quarter: 2014Q4

REPORT INFORMATION
  Report Type: Spontaneous
  Country: US (occurrence: US)
  Receive Date: 20141216
  Receipt Date: 20141216
  Transmission Date: 20150529
  Serious: Yes (Hospitalization)
  Sender: FDA-Public Use
  Company Number: US-PFIZER INC-2014345137

PATIENT
  Age: 40 Year
  Sex: Female
  Weight: 88.44 kg

DRUGS (2)
  1. XANAX [Concomitant]
     Active Substance: ALPRAZOLAM
     Indication: ANXIETY
     Dosage: 1 MG, 3X/DAY
  2. LYRICA [Suspect]
     Active Substance: PREGABALIN
     Indication: FIBROMYALGIA
     Dosage: 150MG CAPSULE TWICE DAILY AND 75MG CAPSULE ONCE DAILY
     Route: 048
     Dates: start: 201311, end: 20141115

REACTIONS (1)
  - Myocardial infarction [Unknown]
